FAERS Safety Report 11137572 (Version 1)
Quarter: 2015Q2

REPORT INFORMATION
  Report Type: Spontaneous
  Country: PL (occurrence: PL)
  Receive Date: 20150526
  Receipt Date: 20150526
  Transmission Date: 20150821
  Serious: Yes (Death, Other)
  Sender: FDA-Public Use
  Company Number: PHHY2015PL060667

PATIENT
  Age: 11 Year
  Sex: Male

DRUGS (7)
  1. ANTITHYMOCYTE IMMUNOGLOBULIN [Concomitant]
     Active Substance: THYMOCYTE IMMUNE GLOBULIN NOS
     Indication: CHRONIC MYELOID LEUKAEMIA
     Route: 065
  2. FLUDARABINE [Suspect]
     Active Substance: FLUDARABINE PHOSPHATE
     Indication: CHLOROMA
     Dosage: 30 MG/M2, UNK
     Route: 065
  3. TREOSULFAN [Concomitant]
     Active Substance: TREOSULFAN
     Indication: PRODUCT USED FOR UNKNOWN INDICATION
     Route: 065
  4. IMATINIB MESYLATE [Suspect]
     Active Substance: IMATINIB MESYLATE
     Indication: CHRONIC MYELOID LEUKAEMIA
     Dosage: 340 MG/M2
     Route: 065
  5. CYCLOPHOSPHAMIDE. [Suspect]
     Active Substance: CYCLOPHOSPHAMIDE
     Indication: CHRONIC MYELOID LEUKAEMIA
     Dosage: 60 MG/KG, QD, 2 DAYS
     Route: 065
  6. BUSULFAN [Suspect]
     Active Substance: BUSULFAN
     Indication: CHRONIC MYELOID LEUKAEMIA
     Dosage: 4 MG/KG, QD, 4 DAYS
     Route: 065
  7. CYTARABINE. [Suspect]
     Active Substance: CYTARABINE
     Indication: CHLOROMA
     Dosage: 2000 MG/M2
     Route: 065

REACTIONS (3)
  - Respiratory arrest [Fatal]
  - Chloroma [Fatal]
  - Horner^s syndrome [Unknown]
